FAERS Safety Report 11302251 (Version 1)
Quarter: 2015Q3

REPORT INFORMATION
  Report Type: Spontaneous
  Country: US (occurrence: US)
  Receive Date: 20150722
  Receipt Date: 20150722
  Transmission Date: 20151125
  Serious: No
  Sender: FDA-Public Use
  Company Number: US-ELI_LILLY_AND_COMPANY-US200803005182

PATIENT
  Age: 81 Year
  Sex: Female

DRUGS (9)
  1. ULTRAM [Concomitant]
     Active Substance: TRAMADOL HYDROCHLORIDE
  2. PLAVIX [Concomitant]
     Active Substance: CLOPIDOGREL BISULFATE
  3. ANTIVERT /00072802/ [Concomitant]
  4. DEPAKOTE [Concomitant]
     Active Substance: DIVALPROEX SODIUM
  5. CALCIUM [Concomitant]
     Active Substance: CALCIUM
  6. METOPROLOL [Concomitant]
     Active Substance: METOPROLOL
  7. EVISTA [Suspect]
     Active Substance: RALOXIFENE HYDROCHLORIDE
  8. FORTEO [Suspect]
     Active Substance: TERIPARATIDE
     Dates: start: 20080319
  9. LEVOTHYROXINE. [Concomitant]
     Active Substance: LEVOTHYROXINE

REACTIONS (1)
  - Dizziness [Not Recovered/Not Resolved]

NARRATIVE: CASE EVENT DATE: 20080320
